FAERS Safety Report 5526624-6 (Version None)
Quarter: 2007Q4

REPORT INFORMATION
  Report Type: 
  Country: None (occurrence: None)
  Receive Date: 20071127
  Receipt Date: 20071116
  Transmission Date: 20080405
  Serious: Yes (Other)
  Sender: FDA-Public Use
  Company Number: GB-AMGEN-US253849

PATIENT
  Age: 69 Year
  Sex: Male
  Weight: 102 kg

DRUGS (19)
  1. ENBREL [Suspect]
     Indication: PSORIATIC ARTHROPATHY
     Route: 058
     Dates: start: 20070620
  2. ENBREL [Suspect]
     Indication: RHEUMATOID ARTHRITIS
  3. BUDESONIDE [Concomitant]
     Indication: ASTHMA
     Route: 055
  4. BUDESONIDE [Concomitant]
     Indication: CHRONIC OBSTRUCTIVE PULMONARY DISEASE
  5. CLOPIDOGREL [Concomitant]
     Indication: MYOCARDIAL ISCHAEMIA
     Route: 048
  6. FOLIC ACID [Concomitant]
     Route: 048
  7. FUROSEMIDE [Concomitant]
     Indication: FLUID RETENTION
     Route: 048
  8. ALBUTEROL [Concomitant]
     Indication: ASTHMA
     Dosage: 200 UG EVERY 1 PRN
     Route: 055
  9. ALBUTEROL [Concomitant]
     Indication: CHRONIC OBSTRUCTIVE PULMONARY DISEASE
     Route: 055
  10. INFLIXIMAB [Concomitant]
     Indication: PSORIATIC ARTHROPATHY
     Dosage: 3MG/KG FREQUENCY UNKNOWN
     Route: 042
  11. INFLIXIMAB [Concomitant]
     Indication: RHEUMATOID ARTHRITIS
  12. LISINOPRIL [Concomitant]
     Indication: MYOCARDIAL ISCHAEMIA
     Route: 048
  13. METHOTREXATE [Concomitant]
     Indication: PSORIATIC ARTHROPATHY
     Route: 048
  14. METHOTREXATE [Concomitant]
     Indication: RHEUMATOID ARTHRITIS
  15. NICORANDIL [Concomitant]
     Indication: MYOCARDIAL ISCHAEMIA
     Route: 048
  16. NIFEDIPINE [Concomitant]
     Indication: HYPERTENSION
     Route: 048
  17. OMEPRAZOLE [Concomitant]
     Route: 048
  18. ATORVASTATIN CALCIUM [Concomitant]
     Indication: BLOOD CHOLESTEROL INCREASED
     Route: 048
  19. GLYCERYL TRINITRATE [Concomitant]
     Indication: CHEST PAIN
     Dosage: AS NEEDED
     Route: 060

REACTIONS (1)
  - ATRIAL FIBRILLATION [None]
